FAERS Safety Report 24095221 (Version 1)
Quarter: 2024Q3

REPORT INFORMATION
  Report Type: Spontaneous
  Country: IT (occurrence: None)
  Receive Date: 20240716
  Receipt Date: 20240716
  Transmission Date: 20241017
  Serious: Yes (Other)
  Sender: ASTRAZENECA
  Company Number: 2024A159139

PATIENT
  Age: 73 Year
  Sex: Female
  Weight: 72 kg

DRUGS (1)
  1. FASENRA [Suspect]
     Active Substance: BENRALIZUMAB
     Route: 058

REACTIONS (1)
  - Pneumonia [Unknown]
